FAERS Safety Report 9999541 (Version 4)
Quarter: 2014Q3

REPORT INFORMATION
  Report Type: Spontaneous
  Country: US (occurrence: US)
  Receive Date: 20140312
  Receipt Date: 20140729
  Transmission Date: 20150326
  Serious: Yes (Hospitalization, Other)
  Sender: FDA-Public Use
  Company Number: US-DENDREON CORPORATION-2014PROUSA03561

PATIENT
  Age: 78 Year
  Sex: Male

DRUGS (8)
  1. ZYTIGA [Concomitant]
     Active Substance: ABIRATERONE ACETATE
     Indication: PRODUCT USED FOR UNKNOWN INDICATION
     Dosage: 500 MCG, QD
     Route: 048
  2. PROVENGE [Suspect]
     Active Substance: SIPULEUCEL-T
     Dosage: 250 ML, SINGLE
     Route: 042
     Dates: start: 20140227, end: 20140227
  3. CENTRUM SILVER [Concomitant]
     Active Substance: VITAMINS
     Indication: PRODUCT USED FOR UNKNOWN INDICATION
     Dosage: 1 TABLETS, QD
     Route: 048
  4. HYDROCODONE BITARTRATE AND ACETAMINOPHEN [Concomitant]
     Active Substance: ACETAMINOPHEN\HYDROCODONE BITARTRATE
     Indication: PAIN
     Dosage: 1 TABLETS, EVERY 6 HRS PRN
     Route: 048
  5. PROVENGE [Suspect]
     Active Substance: SIPULEUCEL-T
     Indication: PROSTATE CANCER METASTATIC
     Dosage: 250 ML, SINGLE
     Route: 042
     Dates: start: 20140213, end: 20140213
  6. PRILOSEC [Concomitant]
     Active Substance: OMEPRAZOLE MAGNESIUM
     Indication: PRODUCT USED FOR UNKNOWN INDICATION
     Dosage: 1 TABLETS, DAILY PRN
     Route: 048
  7. DRONABINOL. [Concomitant]
     Active Substance: DRONABINOL
     Indication: PRODUCT USED FOR UNKNOWN INDICATION
     Dosage: 2.5 MG, BID
     Route: 048
  8. DOCUSATE SODIUM. [Concomitant]
     Active Substance: DOCUSATE SODIUM
     Indication: PRODUCT USED FOR UNKNOWN INDICATION
     Dosage: 100 MG, BID
     Route: 048

REACTIONS (11)
  - Ankle fracture [Not Recovered/Not Resolved]
  - Musculoskeletal chest pain [Unknown]
  - Fall [Recovered/Resolved]
  - Platelet count decreased [Unknown]
  - Disease progression [Unknown]
  - Constipation [Not Recovered/Not Resolved]
  - Haemoglobin decreased [Unknown]
  - Spinal cord compression [Unknown]
  - Blood alkaline phosphatase increased [Unknown]
  - Hypophagia [Not Recovered/Not Resolved]
  - Haematocrit decreased [Unknown]

NARRATIVE: CASE EVENT DATE: 20140224
